FAERS Safety Report 10755432 (Version 1)
Quarter: 2015Q1

REPORT INFORMATION
  Report Type: Spontaneous
  Country: US (occurrence: None)
  Receive Date: 20150121
  Receipt Date: 20150121
  Transmission Date: 20150721
  Serious: Yes (Other)
  Sender: FDA-Public Use
  Company Number: 1000072388

PATIENT
  Age: 52 Year
  Sex: Male

DRUGS (2)
  1. CLARITIN [Concomitant]
     Active Substance: LORATADINE
  2. BYSTOLIC [Suspect]
     Active Substance: NEBIVOLOL HYDROCHLORIDE
     Indication: HYPERTENSION
     Route: 048
     Dates: start: 2012

REACTIONS (4)
  - Feeling abnormal [None]
  - Drug ineffective [None]
  - Blood pressure increased [None]
  - Tinnitus [None]

NARRATIVE: CASE EVENT DATE: 20141110
